FAERS Safety Report 20480062 (Version 1)
Quarter: 2022Q1

REPORT INFORMATION
  Report Type: Spontaneous
  Country: CA (occurrence: None)
  Receive Date: 20220215
  Receipt Date: 20220215
  Transmission Date: 20220424
  Serious: Yes (unspecified)
  Sender: FDA-Public Use
  Company Number: None

PATIENT
  Sex: Female
  Weight: 67.5 kg

DRUGS (3)
  1. SINGULAIR [Suspect]
     Active Substance: MONTELUKAST SODIUM
     Indication: Multiple allergies
     Dates: start: 20101115, end: 20180630
  2. VENTOLIN [Concomitant]
     Active Substance: ALBUTEROL SULFATE
  3. REACTINE [Concomitant]

REACTIONS (11)
  - Agitation [None]
  - Anxiety [None]
  - Depression [None]
  - Disturbance in attention [None]
  - Disorientation [None]
  - Confusional state [None]
  - Hallucination [None]
  - Sleep disorder [None]
  - Memory impairment [None]
  - Suicidal ideation [None]
  - Self-injurious ideation [None]
